FAERS Safety Report 12668269 (Version 1)
Quarter: 2016Q3

REPORT INFORMATION
  Report Type: Spontaneous
  Country: CA (occurrence: CA)
  Receive Date: 20160819
  Receipt Date: 20160819
  Transmission Date: 20161109
  Serious: Yes (Other)
  Sender: FDA-Public Use
  Company Number: CA-MYLANLABS-2016M1034203

PATIENT

DRUGS (1)
  1. MYLAN-NITRO PATCH 0.4 [Suspect]
     Active Substance: NITROGLYCERIN
     Indication: ANGINA PECTORIS
     Dosage: 0.4 MG/HR, QD
     Route: 062

REACTIONS (2)
  - Skin burning sensation [Recovered/Resolved]
  - Rash papular [Recovered/Resolved]
